FAERS Safety Report 9597024 (Version 2)
Quarter: 2013Q4

REPORT INFORMATION
  Report Type: Spontaneous
  Country: US (occurrence: US)
  Receive Date: 20131004
  Receipt Date: 20131227
  Transmission Date: 20140711
  Serious: Yes (Hospitalization, Other)
  Sender: FDA-Public Use
  Company Number: US-PFIZER INC-2013280711

PATIENT
  Age: 44 Year
  Sex: Male

DRUGS (1)
  1. REVATIO [Suspect]
     Indication: OBSTRUCTIVE AIRWAYS DISORDER
     Dosage: 20 MG, 3X/DAY
     Dates: start: 20110728

REACTIONS (4)
  - Swelling [Unknown]
  - Fluid retention [Unknown]
  - Weight decreased [Unknown]
  - Off label use [Unknown]
